FAERS Safety Report 8378514-1 (Version None)
Quarter: 2012Q2

REPORT INFORMATION
  Report Type: 
  Country: None (occurrence: None)
  Receive Date: 20120522
  Receipt Date: 20120515
  Transmission Date: 20120825
  Serious: Yes (Hospitalization)
  Sender: FDA-Public Use
  Company Number: US-TEVA-338790USA

PATIENT
  Age: 83 Year
  Sex: Male

DRUGS (2)
  1. ALLOPURINOL [Concomitant]
  2. TREANDA [Suspect]
     Indication: B-CELL LYMPHOMA
     Route: 042

REACTIONS (2)
  - RASH PRURITIC [None]
  - PHARYNGEAL OEDEMA [None]
